FAERS Safety Report 11844081 (Version 1)
Quarter: 2015Q4

REPORT INFORMATION
  Report Type: Spontaneous
  Country: US (occurrence: None)
  Receive Date: 20151216
  Receipt Date: 20151216
  Transmission Date: 20160305
  Serious: No
  Sender: FDA-Public Use
  Company Number: None

PATIENT
  Age: 49 Year
  Sex: Female

DRUGS (2)
  1. AFINITOR [Suspect]
     Active Substance: EVEROLIMUS
     Indication: NEOPLASM MALIGNANT
     Dosage: AFINITOR 10MG, DAILY, PO
     Route: 048
     Dates: start: 20140916
  2. EXEMESTANE 25MG GREENSTONE [Suspect]
     Active Substance: EXEMESTANE
     Indication: NEOPLASM MALIGNANT
     Dosage: EXEMESTANE 25MG, DAILY, PO
     Route: 048
     Dates: start: 20140916

REACTIONS (2)
  - Tongue disorder [None]
  - Oral disorder [None]

NARRATIVE: CASE EVENT DATE: 20151207
